FAERS Safety Report 14526785 (Version 2)
Quarter: 2018Q1

REPORT INFORMATION
  Report Type: Spontaneous
  Country: IT (occurrence: IT)
  Receive Date: 20180213
  Receipt Date: 20180215
  Transmission Date: 20180509
  Serious: Yes (Life-Threatening, Other)
  Sender: FDA-Public Use
  Company Number: IT-BRISTOL-MYERS SQUIBB COMPANY-BMS-2017-121089

PATIENT
  Age: 48 Year
  Sex: Male

DRUGS (4)
  1. REBETOL [Suspect]
     Active Substance: RIBAVIRIN
     Indication: SUICIDE ATTEMPT
     Route: 048
  2. METHADONE HYDROCHLORIDE. [Suspect]
     Active Substance: METHADONE HYDROCHLORIDE
     Indication: SUICIDE ATTEMPT
     Route: 048
  3. SOVALDI [Suspect]
     Active Substance: SOFOSBUVIR
     Indication: SUICIDE ATTEMPT
     Dosage: 7600 MG, QD
     Route: 048
     Dates: start: 20170121, end: 20170328
  4. DAKLINZA [Suspect]
     Active Substance: DACLATASVIR
     Indication: SUICIDE ATTEMPT
     Dosage: 1140 MG, QD
     Route: 048
     Dates: start: 20170121, end: 20170328

REACTIONS (2)
  - Overdose [Recovered/Resolved]
  - Intentional self-injury [Recovered/Resolved]

NARRATIVE: CASE EVENT DATE: 20170327
